FAERS Safety Report 7509860-9 (Version None)
Quarter: 2011Q2

REPORT INFORMATION
  Report Type: 
  Country: None (occurrence: None)
  Receive Date: 20110527
  Receipt Date: 20110519
  Transmission Date: 20111010
  Serious: Yes (Hospitalization)
  Sender: FDA-Public Use
  Company Number: B0720266A

PATIENT
  Sex: Female

DRUGS (4)
  1. ATROVENT [Suspect]
     Indication: ASTHMA
     Route: 055
     Dates: start: 20101225, end: 20101225
  2. CYPROTERONE ACETATE + ETHINYLOESTRADIOL [Concomitant]
  3. VENTOLIN [Suspect]
     Indication: ASTHMA
     Dosage: 100MCG AS REQUIRED
     Route: 055
     Dates: start: 20101224, end: 20101225
  4. BRICANYL [Suspect]
     Indication: ASTHMA
     Route: 055
     Dates: start: 20101225, end: 20101225

REACTIONS (3)
  - HYPERLACTACIDAEMIA [None]
  - TACHYCARDIA [None]
  - LACTIC ACIDOSIS [None]
